FAERS Safety Report 8385460 (Version 2)
Quarter: 2015Q1

REPORT INFORMATION
  Report Type: Report from Study
  Country: US (occurrence: US)
  Receive Date: 20120202
  Receipt Date: 20150305
  Transmission Date: 20150721
  Serious: Yes (Death)
  Sender: FDA-Public Use
  Company Number: US-ROCHE-1035843

PATIENT
  Age: 55 Year
  Sex: Female

DRUGS (17)
  1. AVASTIN [Suspect]
     Active Substance: BEVACIZUMAB
     Indication: COLON CANCER
     Route: 042
     Dates: start: 20060809
  2. AVASTIN [Suspect]
     Active Substance: BEVACIZUMAB
     Route: 042
     Dates: start: 20060906
  3. BENADRYL [Concomitant]
     Active Substance: DIPHENHYDRAMINE HYDROCHLORIDE
     Route: 042
  4. DECADRON [Concomitant]
     Active Substance: DEXAMETHASONE
     Route: 042
  5. ATROPINE [Concomitant]
     Active Substance: ATROPINE
     Route: 042
  6. FLUOROURACIL. [Concomitant]
     Active Substance: FLUOROURACIL
     Route: 042
  7. AVASTIN [Suspect]
     Active Substance: BEVACIZUMAB
     Indication: ADENOCARCINOMA
     Route: 042
     Dates: start: 20060628
  8. IRINOTECAN [Concomitant]
     Active Substance: IRINOTECAN
     Route: 042
  9. ATIVAN [Concomitant]
     Active Substance: LORAZEPAM
     Route: 042
  10. ALOXI [Concomitant]
     Active Substance: PALONOSETRON HYDROCHLORIDE
     Route: 042
  11. DOCETAXEL. [Concomitant]
     Active Substance: DOCETAXEL
     Route: 042
  12. ANZEMET [Concomitant]
     Active Substance: DOLASETRON MESYLATE
     Route: 042
  13. ZOMETA [Concomitant]
     Active Substance: ZOLEDRONIC ACID
     Route: 042
  14. LEUCOVORIN [Concomitant]
     Active Substance: LEUCOVORIN
     Route: 042
  15. TAXOTERE [Concomitant]
     Active Substance: DOCETAXEL
     Route: 042
  16. REGLAN [Concomitant]
     Active Substance: METOCLOPRAMIDE HYDROCHLORIDE
     Route: 042
  17. ZITHROMAX [Concomitant]
     Active Substance: AZITHROMYCIN DIHYDRATE
     Route: 042

REACTIONS (9)
  - Death [Fatal]
  - Dysgeusia [Unknown]
  - Pleural effusion [Unknown]
  - Off label use [Unknown]
  - Nausea [Unknown]
  - Headache [Unknown]
  - Bronchitis [Unknown]
  - Malaise [Unknown]
  - Herpes zoster [Unknown]

NARRATIVE: CASE EVENT DATE: 20061202
